FAERS Safety Report 17976358 (Version 1)
Quarter: 2020Q3

REPORT INFORMATION
  Report Type: Spontaneous
  Country: IT (occurrence: IT)
  Receive Date: 20200703
  Receipt Date: 20200703
  Transmission Date: 20201103
  Serious: Yes (Hospitalization)
  Sender: FDA-Public Use
  Company Number: IT-TEVA-2020-IT-1794036

PATIENT
  Age: 44 Year
  Sex: Female

DRUGS (3)
  1. NAPROXEN SODIUM. [Suspect]
     Active Substance: NAPROXEN SODIUM
     Indication: DRUG ABUSE
     Dosage: 16 DF
     Route: 048
  2. TAVOR (LORAZEPAM) [Suspect]
     Active Substance: LORAZEPAM
     Indication: DRUG ABUSE
     Dosage: 20 DF
     Route: 048
  3. TORA?DOL 20 MG/ML GOCCE ORALI, SOLUZIONE [Suspect]
     Active Substance: KETOROLAC TROMETHAMINE
     Indication: DRUG ABUSE
     Dosage: 15 GTT
     Route: 048

REACTIONS (5)
  - Psychomotor hyperactivity [Recovering/Resolving]
  - Suicide attempt [Recovering/Resolving]
  - Blood creatine phosphokinase increased [Recovering/Resolving]
  - Intentional self-injury [Recovering/Resolving]
  - Drug abuse [Recovering/Resolving]

NARRATIVE: CASE EVENT DATE: 20200611
